FAERS Safety Report 6374744-9 (Version None)
Quarter: 2009Q3

REPORT INFORMATION
  Report Type: 
  Country: None (occurrence: None)
  Receive Date: 20090924
  Receipt Date: 20090915
  Transmission Date: 20100115
  Serious: Yes (Other)
  Sender: FDA-Public Use
  Company Number: PHHY2009BR39423

PATIENT
  Sex: Female
  Weight: 60 kg

DRUGS (3)
  1. RASILEZ [Suspect]
     Indication: HYPERTENSION
     Dosage: 1 TABLET (150 MG) DAILY
     Route: 048
  2. CENTRUM [Concomitant]
  3. MELILOT [Concomitant]
     Indication: PERIPHERAL VASCULAR DISORDER
     Dosage: UNK

REACTIONS (5)
  - AMNESIA [None]
  - BLOOD PRESSURE INADEQUATELY CONTROLLED [None]
  - CHONDROPATHY [None]
  - DEMENTIA ALZHEIMER'S TYPE [None]
  - MEMORY IMPAIRMENT [None]
